FAERS Safety Report 6596997-4 (Version None)
Quarter: 2010Q1

REPORT INFORMATION
  Report Type: 
  Country: None (occurrence: None)
  Receive Date: 20100223
  Receipt Date: 20100216
  Transmission Date: 20100710
  Serious: No
  Sender: FDA-Public Use
  Company Number: US-B.I. PHARMACEUTICALS,INC./RIDGEFIELD-2010-BP-01900BP

PATIENT
  Age: 75 Year
  Sex: Female

DRUGS (7)
  1. SPIRIVA [Suspect]
     Indication: CHRONIC OBSTRUCTIVE PULMONARY DISEASE
     Dosage: 18 MCG
     Route: 055
     Dates: start: 20060101, end: 20090101
  2. SPIRIVA [Suspect]
     Route: 055
     Dates: start: 20090101
  3. FORADIL [Concomitant]
     Indication: CHRONIC OBSTRUCTIVE PULMONARY DISEASE
  4. TRILEPTAL [Concomitant]
     Indication: FACIAL SPASM
  5. CAPTOPRIL [Concomitant]
     Indication: HYPERTENSION
  6. LIPITOR [Concomitant]
     Indication: BLOOD CHOLESTEROL INCREASED
  7. VITAMINS [Concomitant]
     Indication: PROPHYLAXIS

REACTIONS (2)
  - MACULAR DEGENERATION [None]
  - PRURITUS [None]
